FAERS Safety Report 5356401-0 (Version None)
Quarter: 2007Q2

REPORT INFORMATION
  Report Type: 
  Country: None (occurrence: None)
  Receive Date: 20070613
  Receipt Date: 20070608
  Transmission Date: 20071010
  Serious: Yes (Other)
  Sender: FDA-Public Use
  Company Number: -MERCK-0706HUN00003

PATIENT
  Age: 67 Year
  Sex: Female

DRUGS (1)
  1. FOSAMAX [Suspect]
     Indication: OSTEOPOROSIS
     Route: 048
     Dates: start: 20051201, end: 20070525

REACTIONS (6)
  - CHOKING [None]
  - GASTROINTESTINAL DISORDER [None]
  - GENERAL PHYSICAL CONDITION ABNORMAL [None]
  - HEADACHE [None]
  - MYALGIA [None]
  - PYREXIA [None]
